FAERS Safety Report 7262272-8 (Version None)
Quarter: 2011Q1

REPORT INFORMATION
  Report Type: 
  Country: None (occurrence: None)
  Receive Date: 20110130
  Receipt Date: 20101115
  Transmission Date: 20110831
  Serious: No
  Sender: FDA-Public Use
  Company Number: US-ABBOTT-10P-163-0685563-00

PATIENT
  Age: 52 Year
  Sex: Female

DRUGS (2)
  1. ASACOL [Concomitant]
     Indication: CROHN'S DISEASE
     Dosage: 2 IN THE AM 2 IN THE PM
  2. HUMIRA [Suspect]
     Indication: CROHN'S DISEASE
     Dates: start: 20101001, end: 20101103

REACTIONS (3)
  - BRONCHITIS [None]
  - RESPIRATORY TRACT CONGESTION [None]
  - COUGH [None]
